FAERS Safety Report 6198604-1 (Version None)
Quarter: 2009Q2

REPORT INFORMATION
  Report Type: 
  Country: None (occurrence: None)
  Receive Date: 20090519
  Receipt Date: 20090519
  Transmission Date: 20091009
  Serious: Yes (Disabling)
  Sender: FDA-Public Use
  Company Number: None

PATIENT
  Age: 54 Year
  Sex: Male
  Weight: 92.9874 kg

DRUGS (4)
  1. CADUET [Suspect]
     Indication: BLOOD CHOLESTEROL INCREASED
     Dosage: 1 PER DAY PO
     Route: 048
     Dates: start: 20070601, end: 20081001
  2. CADUET [Suspect]
     Indication: BLOOD PRESSURE INCREASED
     Dosage: 1 PER DAY PO
     Route: 048
     Dates: start: 20070601, end: 20081001
  3. CADUET [Suspect]
     Indication: BLOOD CHOLESTEROL INCREASED
     Dosage: 1 PER DAY PO
     Route: 048
     Dates: start: 20090420, end: 20090518
  4. CADUET [Suspect]
     Indication: BLOOD PRESSURE INCREASED
     Dosage: 1 PER DAY PO
     Route: 048
     Dates: start: 20090420, end: 20090518

REACTIONS (1)
  - MUSCULAR WEAKNESS [None]
